FAERS Safety Report 9242389 (Version 1)
Quarter: 2013Q2

REPORT INFORMATION
  Report Type: Spontaneous
  Country: CA (occurrence: CA)
  Receive Date: 20130419
  Receipt Date: 20130419
  Transmission Date: 20140414
  Serious: Yes (Disabling)
  Sender: FDA-Public Use
  Company Number: CA-TEVA-399427USA

PATIENT
  Age: 87 Year
  Sex: Female
  Weight: 118 kg

DRUGS (2)
  1. AMLODIPINE [Suspect]
  2. LORAZEPAM [Concomitant]

REACTIONS (1)
  - Cough [Unknown]
